FAERS Safety Report 6547674-7 (Version None)
Quarter: 2010Q1

REPORT INFORMATION
  Report Type: 
  Country: None (occurrence: None)
  Receive Date: 20100123
  Receipt Date: 20100113
  Transmission Date: 20100710
  Serious: Yes (Other)
  Sender: FDA-Public Use
  Company Number: US-JNJFOC-20100105693

PATIENT
  Sex: Male

DRUGS (1)
  1. TYLENOL SINUS MEDICATION [Suspect]
     Indication: DRUG USE FOR UNKNOWN INDICATION
     Dosage: TOOK LIKE CANDY FOR 15 YEARS

REACTIONS (1)
  - SCHIZOPHRENIA, PARANOID TYPE [None]
